FAERS Safety Report 18848746 (Version 2)
Quarter: 2021Q1

REPORT INFORMATION
  Report Type: Report from Study
  Country: AR (occurrence: AR)
  Receive Date: 20210205
  Receipt Date: 20210209
  Transmission Date: 20210419
  Serious: Yes (Hospitalization)
  Sender: FDA-Public Use
  Company Number: NVSC2020AR347877

PATIENT
  Age: 44 Year
  Sex: Female
  Weight: 74 kg

DRUGS (3)
  1. FULVESTRANT. [Suspect]
     Active Substance: FULVESTRANT
     Indication: HORMONE RECEPTOR POSITIVE BREAST CANCER
     Dosage: 500 MG, Q4W
     Route: 030
     Dates: start: 20200910, end: 20210104
  2. INSULINE [Concomitant]
     Active Substance: INSULIN NOS
     Indication: DIABETES MELLITUS
     Dosage: UNK
     Route: 042
     Dates: start: 201806
  3. ALPELISIB [Suspect]
     Active Substance: ALPELISIB
     Indication: HORMONE RECEPTOR POSITIVE BREAST CANCER
     Dosage: 300 MG, QD
     Route: 048
     Dates: start: 20200910, end: 20201229

REACTIONS (2)
  - Confusional state [Not Recovered/Not Resolved]
  - Hyperglycaemia [Recovered/Resolved]

NARRATIVE: CASE EVENT DATE: 20201230
